FAERS Safety Report 9688887 (Version 1)
Quarter: 2013Q4

REPORT INFORMATION
  Report Type: Spontaneous
  Country: US (occurrence: US)
  Receive Date: 20131114
  Receipt Date: 20131114
  Transmission Date: 20140711
  Serious: No
  Sender: FDA-Public Use
  Company Number: US-BAYER-2013-138723

PATIENT
  Sex: 0

DRUGS (2)
  1. ALEVE CAPLET [Suspect]
  2. CELEBREX [Concomitant]
     Dosage: UNK

REACTIONS (1)
  - Oedema [None]
